FAERS Safety Report 19816087 (Version 1)
Quarter: 2021Q3

REPORT INFORMATION
  Report Type: Spontaneous
  Country: US (occurrence: US)
  Receive Date: 20210910
  Receipt Date: 20210910
  Transmission Date: 20211014
  Serious: Yes (Disabling)
  Sender: FDA-Public Use
  Company Number: US-TEVA-2021-US-1952849

PATIENT
  Age: 41 Year
  Sex: Female
  Weight: 68.94 kg

DRUGS (13)
  1. DOCETAXEL SAGENT [Suspect]
     Active Substance: DOCETAXEL
     Indication: BREAST CANCER FEMALE
     Dosage: STRENGTH: 80MG, NUMBER OF CYCLE ? 03, FREQUENCY ? EVERY THREE WEEKS
     Route: 065
     Dates: start: 20150619, end: 20150818
  2. EPIRUBICIN [Concomitant]
     Active Substance: EPIRUBICIN
     Indication: BREAST CANCER FEMALE
     Dosage: DOSE: 500MG, NUMBER OF CYCLE ? 03, FREQUENCY ? EVERY THREE WEEKS
     Route: 065
     Dates: start: 20150619, end: 20150818
  3. SYNTHROID [Concomitant]
     Active Substance: LEVOTHYROXINE SODIUM
     Indication: HYPOTHYROIDISM
     Route: 065
     Dates: start: 20020101
  4. DOCETAXEL SAGENT [Suspect]
     Active Substance: DOCETAXEL
     Dosage: STRENGTH: 20MG, NUMBER OF CYCLE ? 03, FREQUENCY ? EVERY THREE WEEKS
     Route: 065
     Dates: start: 20150619, end: 20150818
  5. CYCLOPHOSPHAMIDE. [Concomitant]
     Active Substance: CYCLOPHOSPHAMIDE
     Indication: BREAST CANCER FEMALE
     Dosage: DOSE: 1000MG, NUMBER OF CYCLE ? 03, FREQUENCY ? EVERY THREE WEEKS
     Route: 065
     Dates: start: 20150619, end: 20150818
  6. DOCETAXEL ACTAVIS [Suspect]
     Active Substance: DOCETAXEL
     Indication: BREAST CANCER FEMALE
     Dosage: STRENGTH: 80MG, NUMBER OF CYCLE ? 03, FREQUENCY ? EVERY THREE WEEKS
     Route: 065
     Dates: start: 20150619, end: 20150818
  7. CYCLOPHOSPHAMIDE. [Concomitant]
     Active Substance: CYCLOPHOSPHAMIDE
     Dosage: DOSE: 500MG, NUMBER OF CYCLE ? 03, FREQUENCY ? EVERY THREE WEEKS
     Route: 065
     Dates: start: 20150619, end: 20150818
  8. ONDANSETRON [Concomitant]
     Active Substance: ONDANSETRON
     Route: 065
  9. MELATONIN [Concomitant]
     Active Substance: MELATONIN
     Route: 065
     Dates: start: 20020101
  10. DOCETAXEL ACTAVIS [Suspect]
     Active Substance: DOCETAXEL
     Dosage: STRENGTH: 20MG, NUMBER OF CYCLE ? 03, FREQUENCY ? EVERY THREE WEEKS
     Route: 065
     Dates: start: 20150619, end: 20150818
  11. ARIMIDEX [Concomitant]
     Active Substance: ANASTROZOLE
     Route: 065
     Dates: start: 20160202
  12. DOCETAXEL ACCORD [Suspect]
     Active Substance: DOCETAXEL
     Indication: BREAST CANCER FEMALE
     Dosage: DOSE: 80MG, NUMBER OF CYCLE ? 03, FREQUENCY ? EVERY THREE WEEKS
     Route: 065
     Dates: start: 20150619, end: 20150818
  13. DOCETAXEL ACCORD [Suspect]
     Active Substance: DOCETAXEL
     Dosage: DOSE: 20MG, NUMBER OF CYCLE ? 03, FREQUENCY ? EVERY THREE WEEKS
     Route: 065
     Dates: start: 20150619, end: 20150818

REACTIONS (4)
  - Alopecia areata [Not Recovered/Not Resolved]
  - Hair texture abnormal [Not Recovered/Not Resolved]
  - Hair colour changes [Not Recovered/Not Resolved]
  - Madarosis [Not Recovered/Not Resolved]

NARRATIVE: CASE EVENT DATE: 20160415
